FAERS Safety Report 9130469 (Version 1)
Quarter: 2013Q1

REPORT INFORMATION
  Report Type: Spontaneous
  Country: DE (occurrence: DE)
  Receive Date: 20130301
  Receipt Date: 20130301
  Transmission Date: 20140127
  Serious: Yes (Other)
  Sender: FDA-Public Use
  Company Number: DE-BIOGENIDEC-2013BI018788

PATIENT
  Age: 33 Year
  Sex: Female
  Weight: 58 kg

DRUGS (3)
  1. TYSABRI [Suspect]
     Indication: PRODUCT USED FOR UNKNOWN INDICATION
     Route: 042
  2. CITALOPRAM [Concomitant]
     Indication: ANXIETY
     Dates: start: 201108
  3. EUTHYROX [Concomitant]
     Indication: HYPOTHYROIDISM
     Dates: start: 201006

REACTIONS (3)
  - Abortion spontaneous [Recovered/Resolved]
  - Placental insufficiency [Recovered/Resolved]
  - Twin pregnancy [Recovered/Resolved]
